FAERS Safety Report 6717614-6 (Version None)
Quarter: 2010Q2

REPORT INFORMATION
  Report Type: 
  Country: None (occurrence: None)
  Receive Date: 20100507
  Receipt Date: 20100507
  Transmission Date: 20101027
  Serious: Yes (Other)
  Sender: FDA-Public Use
  Company Number: None

PATIENT
  Age: 80 Year
  Sex: Female
  Weight: 70.3075 kg

DRUGS (9)
  1. TAMBOCOR [Suspect]
     Indication: ATRIAL FIBRILLATION
     Dosage: 3 TABS EVERY 12 HOURS PO
     Route: 048
     Dates: start: 19900101
  2. SECTRAL [Concomitant]
  3. FOSAMAX [Concomitant]
  4. OMEPRAZOLE [Concomitant]
  5. LISINOPRIL [Concomitant]
  6. HYDROCHLOROTHIAZIDE [Concomitant]
  7. VITAMINS [Concomitant]
  8. FOLIC ACID [Concomitant]
  9. POTASSIUM [Concomitant]

REACTIONS (6)
  - DYSPNOEA [None]
  - FATIGUE [None]
  - NAUSEA [None]
  - NO REACTION ON PREVIOUS EXPOSURE TO DRUG [None]
  - PRODUCT QUALITY ISSUE [None]
  - PULSE PRESSURE ABNORMAL [None]
